FAERS Safety Report 19860308 (Version 2)
Quarter: 2025Q4

REPORT INFORMATION
  Report Type: Spontaneous
  Country: CA (occurrence: CA)
  Receive Date: 20210921
  Receipt Date: 20251006
  Transmission Date: 20260117
  Serious: Yes (Hospitalization, Other)
  Sender: ACCORD
  Company Number: None

PATIENT
  Age: 52 Year
  Sex: Female

DRUGS (43)
  1. QUETIAPINE [Suspect]
     Active Substance: QUETIAPINE
     Indication: Psychotic disorder
     Dosage: 1 EVERY 1 DAY
     Route: 048
  2. CLONAZEPAM [Suspect]
     Active Substance: CLONAZEPAM
     Indication: Hypomania
     Dosage: 1 EVERY 1 DAY
     Route: 048
  3. TRAZODONE [Suspect]
     Active Substance: TRAZODONE HYDROCHLORIDE
     Indication: Depression
     Dosage: 1 EVERY 1 DAY
     Route: 048
  4. APTIVUS [Suspect]
     Active Substance: TIPRANAVIR
     Indication: HIV infection
     Dosage: 1 EVERY 1 DAY
     Route: 048
  5. ACETAMINOPHEN [Suspect]
     Active Substance: ACETAMINOPHEN
     Indication: Pain in extremity
     Route: 048
  6. DIAZEPAM [Suspect]
     Active Substance: DIAZEPAM
     Indication: Depression
     Route: 048
  7. OLANZAPINE [Suspect]
     Active Substance: OLANZAPINE
     Indication: Psychotic disorder
     Dosage: 1 EVERY 1 DAYS
     Route: 048
  8. PROCYCLIDINE [Suspect]
     Active Substance: PROCYCLIDINE
     Indication: Prophylaxis
     Dosage: 1 EVERY 1 DAYS
     Route: 048
  9. RISPERIDONE [Suspect]
     Active Substance: RISPERIDONE
     Indication: Psychotic disorder
     Dosage: 1 EVERY 1 DAY
     Route: 048
  10. TEGRETOL [Suspect]
     Active Substance: CARBAMAZEPINE
     Indication: Hypomania
     Dosage: 2 EVERY 1 DAY
  11. DIVALPROEX SODIUM [Suspect]
     Active Substance: DIVALPROEX SODIUM
     Indication: Product used for unknown indication
     Dosage: 1 EVERY 1 DAY
     Route: 048
  12. NYSTATIN [Suspect]
     Active Substance: NYSTATIN
     Indication: Pain in extremity
  13. TIPRANAVIR [Suspect]
     Active Substance: TIPRANAVIR
     Indication: HIV infection
     Dosage: 1 EVERY 1 DAY
  14. LAMIVUDINE [Concomitant]
     Active Substance: LAMIVUDINE
  15. ABACAVIR [Concomitant]
     Active Substance: ABACAVIR
  16. ACETAMINOPHEN [Concomitant]
     Active Substance: ACETAMINOPHEN
     Indication: Pain in extremity
     Route: 048
  17. PROGUANIL, ATOVAQUONE [Concomitant]
  18. BISACODYL [Concomitant]
     Active Substance: BISACODYL
  19. CALCIUM CARBONATE [Concomitant]
     Active Substance: CALCIUM CARBONATE
  20. CHLORAL HYDRATE [Concomitant]
     Active Substance: CHLORAL HYDRATE
  21. IMODIUM [Concomitant]
     Active Substance: LOPERAMIDE HYDROCHLORIDE
  22. KALETRA [Concomitant]
     Active Substance: LOPINAVIR\RITONAVIR
  23. LACTULOSE [Concomitant]
     Active Substance: LACTULOSE
     Dosage: LIQUID
     Route: 048
  24. LITHIUM [Concomitant]
     Active Substance: LITHIUM
  25. NYSTATIN [Concomitant]
     Active Substance: NYSTATIN
     Route: 048
  26. ENFUVIRTIDE [Concomitant]
     Active Substance: ENFUVIRTIDE
  27. VITAMINS NOS [Concomitant]
     Active Substance: VITAMINS
  28. ENFUVIRTIDE [Concomitant]
     Active Substance: ENFUVIRTIDE
     Indication: Product used for unknown indication
     Route: 065
  29. SERTRALINE [Concomitant]
     Active Substance: SERTRALINE HYDROCHLORIDE
  30. PROCYCLIDINE HYDROCHLORIDE [Concomitant]
     Active Substance: PROCYCLIDINE HYDROCHLORIDE
     Indication: Prophylaxis
  31. LAMIVUDINE [Concomitant]
     Active Substance: LAMIVUDINE
  32. ATOVAQUONE [Concomitant]
     Active Substance: ATOVAQUONE
     Dosage: SUSPENSION
  33. LOPERAMIDE HYDROCHLORIDE [Concomitant]
     Active Substance: LOPERAMIDE HYDROCHLORIDE
     Indication: Product used for unknown indication
  34. LOPINAVIR [Concomitant]
     Active Substance: LOPINAVIR
  35. PROGUANIL HYDROCHLORIDE [Concomitant]
     Active Substance: PROGUANIL HYDROCHLORIDE
  36. RITONAVIR [Concomitant]
     Active Substance: RITONAVIR
  37. PROCYCLIDINE HYDROCHLORIDE [Concomitant]
     Active Substance: PROCYCLIDINE HYDROCHLORIDE
     Indication: Musculoskeletal stiffness
  38. TEGRETOL [Suspect]
     Active Substance: CARBAMAZEPINE
     Indication: Hypomania
     Dosage: 1 EVERY .5 DAY
     Route: 048
  39. DIVALPROEX SODIUM [Suspect]
     Active Substance: DIVALPROEX SODIUM
     Indication: Product used for unknown indication
     Dosage: 1 EVERY 1 DAY
     Route: 048
  40. DIAZEPAM [Suspect]
     Active Substance: DIAZEPAM
     Indication: Depression
     Dosage: 2 EVERY 1 DAY, 1 EVERY 1 DAY
     Route: 048
  41. DIAZEPAM [Suspect]
     Active Substance: DIAZEPAM
     Indication: Depression
     Dosage: 1 EVERY 1 DAY
     Route: 048
  42. OLANZAPINE [Suspect]
     Active Substance: OLANZAPINE
     Indication: Psychotic disorder
     Dosage: 1 EVERY 1 DAY
     Route: 048
  43. PROCYCLIDINE [Suspect]
     Active Substance: PROCYCLIDINE
     Indication: Musculoskeletal stiffness
     Dosage: 1 EVERY 1 DAY
     Route: 048

REACTIONS (12)
  - Jaundice cholestatic [Unknown]
  - Blood bilirubin increased [Unknown]
  - Cholelithiasis [Unknown]
  - Condition aggravated [Unknown]
  - Hepatic enzyme increased [Unknown]
  - Hepatotoxicity [Unknown]
  - Hypomania [Unknown]
  - Nausea [Unknown]
  - Pneumonia [Unknown]
  - Psychotic disorder [Unknown]
  - Schizophrenia [Unknown]
  - Vomiting [Unknown]
